FAERS Safety Report 7634397-6 (Version None)
Quarter: 2011Q3

REPORT INFORMATION
  Report Type: 
  Country: None (occurrence: None)
  Receive Date: 20110725
  Receipt Date: 20110714
  Transmission Date: 20111222
  Serious: Yes (Other)
  Sender: FDA-Public Use
  Company Number: PHFR2011GB04212

PATIENT
  Sex: Female

DRUGS (2)
  1. FEMARA [Suspect]
     Dosage: UNK
     Route: 065
  2. CHEMOTHERAPEUTICS NOS [Suspect]

REACTIONS (4)
  - LYMPHOEDEMA [None]
  - FLUID RETENTION [None]
  - HEADACHE [None]
  - ENCEPHALITIS [None]
